FAERS Safety Report 9214887 (Version 1)
Quarter: 2013Q2

REPORT INFORMATION
  Report Type: Spontaneous
  Country: US (occurrence: US)
  Receive Date: 20130405
  Receipt Date: 20130405
  Transmission Date: 20140414
  Serious: No
  Sender: FDA-Public Use
  Company Number: US-009507513-1304USA002315

PATIENT
  Sex: 0

DRUGS (2)
  1. AZASITE [Suspect]
     Dosage: 1 DROP ON BOTH EYELIDS, BID
     Dates: start: 20130328, end: 20130330
  2. AZASITE [Suspect]
     Dosage: 1 DROP ON BOTH EYELIDS, QD, FOR 7 DAYS
     Dates: start: 20130331

REACTIONS (3)
  - Wrong technique in drug usage process [Unknown]
  - Product packaging quantity issue [Unknown]
  - No adverse event [Unknown]
